FAERS Safety Report 19803584 (Version 1)
Quarter: 2021Q3

REPORT INFORMATION
  Report Type: Spontaneous
  Country: IN (occurrence: IN)
  Receive Date: 20210908
  Receipt Date: 20210908
  Transmission Date: 20211014
  Serious: Yes (Other)
  Sender: FDA-Public Use
  Company Number: IN-LUPIN PHARMACEUTICALS INC.-2021-16744

PATIENT
  Age: 8 Year
  Sex: Male

DRUGS (4)
  1. CALCIUM [Suspect]
     Active Substance: CALCIUM
     Dosage: 75 MILLIGRAM/KILOGRAM, QD
     Route: 048
  2. CALCIUM [Suspect]
     Active Substance: CALCIUM
     Dosage: 100 MILLIGRAM/KILOGRAM, QD
     Route: 048
  3. CALCIUM [Suspect]
     Active Substance: CALCIUM
     Indication: HYPOPARATHYROIDISM
     Dosage: UNK
     Route: 042
  4. CALCITRIOL. [Suspect]
     Active Substance: CALCITRIOL
     Indication: HYPOPARATHYROIDISM
     Dosage: UNK
     Route: 065

REACTIONS (2)
  - Hypercalciuria [Recovered/Resolved]
  - Nephrocalcinosis [Recovered/Resolved]
